FAERS Safety Report 5101096-4 (Version None)
Quarter: 2006Q3

REPORT INFORMATION
  Report Type: 
  Country: None (occurrence: None)
  Receive Date: 20060911
  Receipt Date: 20060818
  Transmission Date: 20061208
  Serious: Yes (Death)
  Sender: FDA-Public Use
  Company Number: HQWYE748421AUG06

PATIENT
  Sex: Male
  Weight: 51 kg

DRUGS (13)
  1. ENBREL [Suspect]
     Indication: RHEUMATOID ARTHRITIS
     Route: 058
     Dates: start: 20051013, end: 20060801
  2. PREDONINE [Concomitant]
     Indication: RHEUMATOID ARTHRITIS
     Route: 048
     Dates: start: 20051013, end: 20051109
  3. PREDONINE [Concomitant]
     Route: 048
     Dates: start: 20051110, end: 20060802
  4. HYPEN [Concomitant]
     Indication: RHEUMATOID ARTHRITIS
     Route: 048
     Dates: start: 20051013, end: 20060802
  5. BENET [Concomitant]
     Indication: OSTEOPOROSIS
     Route: 048
     Dates: start: 20051013, end: 20060802
  6. SOLON [Concomitant]
     Dosage: UNKNOWN
     Route: 048
  7. POLARAMINE [Concomitant]
     Indication: ECZEMA ASTEATOTIC
     Route: 048
     Dates: start: 20051229, end: 20060704
  8. BLOPRESS [Concomitant]
     Indication: HYPERTENSION
     Route: 048
     Dates: start: 20051005, end: 20060802
  9. CALBLOCK [Concomitant]
     Indication: HYPERTENSION
     Route: 048
     Dates: start: 20051005, end: 20060706
  10. EPOGEN [Concomitant]
     Indication: NEPHROGENIC ANAEMIA
     Route: 058
     Dates: start: 20051019, end: 20060706
  11. SULFASALAZINE [Concomitant]
     Indication: RHEUMATOID ARTHRITIS
     Route: 048
     Dates: start: 20010611
  12. SULFASALAZINE [Concomitant]
     Route: 048
     Dates: start: 20051013, end: 20060315
  13. ONE-ALPHA [Concomitant]
     Indication: OSTEOPOROSIS
     Route: 048
     Dates: start: 20051013, end: 20060802

REACTIONS (9)
  - CARDIO-RESPIRATORY ARREST [None]
  - DEHYDRATION [None]
  - LABORATORY TEST ABNORMAL [None]
  - LOSS OF CONSCIOUSNESS [None]
  - MALAISE [None]
  - OEDEMA PERIPHERAL [None]
  - PAIN IN EXTREMITY [None]
  - RASH [None]
  - URTICARIA [None]
